FAERS Safety Report 18020671 (Version 3)
Quarter: 2020Q4

REPORT INFORMATION
  Report Type: Spontaneous
  Country: US (occurrence: US)
  Receive Date: 20200714
  Receipt Date: 20201113
  Transmission Date: 20210113
  Serious: No
  Sender: FDA-Public Use
  Company Number: US-VERTEX PHARMACEUTICALS-2020-014470

PATIENT
  Age: 32 Year
  Sex: Male

DRUGS (5)
  1. POSACONAZOLE [Concomitant]
     Active Substance: POSACONAZOLE
  2. TRIKAFTA [Suspect]
     Active Substance: ELEXACAFTOR\IVACAFTOR\TEZACAFTOR
     Indication: CYSTIC FIBROSIS
     Dosage: 100MG ELEXACAFTOR/ 50MG TEZACAFTOR/ 75MG IVACAFTOR) AND (150MG IVACAFTOR)UNK FREQ
     Route: 048
     Dates: start: 202006
  3. BACTRIM [Concomitant]
     Active Substance: SULFAMETHOXAZOLE\TRIMETHOPRIM
  4. TRIKAFTA [Suspect]
     Active Substance: ELEXACAFTOR\IVACAFTOR\TEZACAFTOR
     Dosage: 2 ORANGE PILLS TWICE WEEK
     Route: 048
     Dates: start: 20200705, end: 202010
  5. TACROLIMUS. [Concomitant]
     Active Substance: TACROLIMUS

REACTIONS (5)
  - Acne [Not Recovered/Not Resolved]
  - Alopecia [Not Recovered/Not Resolved]
  - Emotional disorder [Unknown]
  - Paranasal sinus hypersecretion [Unknown]
  - Mental disorder [Unknown]

NARRATIVE: CASE EVENT DATE: 2020
